FAERS Safety Report 16095779 (Version 5)
Quarter: 2021Q2

REPORT INFORMATION
  Report Type: Report from Study
  Country: CA (occurrence: CA)
  Receive Date: 20190320
  Receipt Date: 20210611
  Transmission Date: 20210716
  Serious: Yes (Other)
  Sender: FDA-Public Use
  Company Number: CA-JNJFOC-20190324910

PATIENT
  Age: 37 Year
  Sex: Female
  Weight: 51.9 kg

DRUGS (3)
  1. REMICADE [Suspect]
     Active Substance: INFLIXIMAB
     Dosage: THE DOSE GIVEN ON JAN?2016
     Route: 042
     Dates: start: 20080501
  2. REMICADE [Suspect]
     Active Substance: INFLIXIMAB
     Indication: CROHN^S DISEASE
     Dosage: DOSE RECEIVED ON 01?MAY?2008
     Route: 042
     Dates: start: 20030521
  3. PURINETHOL [Concomitant]
     Active Substance: MERCAPTOPURINE
     Indication: PRODUCT USED FOR UNKNOWN INDICATION
     Route: 065

REACTIONS (5)
  - Anal fistula [Not Recovered/Not Resolved]
  - Off label use [Unknown]
  - Vaginal fistula [Not Recovered/Not Resolved]
  - Skin cancer [Unknown]
  - Product use issue [Unknown]

NARRATIVE: CASE EVENT DATE: 20080501
